FAERS Safety Report 9143984 (Version 2)
Quarter: 2013Q1

REPORT INFORMATION
  Report Type: Report from Study
  Country: AU (occurrence: AU)
  Receive Date: 20130306
  Receipt Date: 20130314
  Transmission Date: 20140127
  Serious: No
  Sender: FDA-Public Use
  Company Number: AU-JNJFOC-20130301345

PATIENT
  Sex: Female

DRUGS (10)
  1. STELARA [Suspect]
     Indication: PSORIASIS
     Route: 058
     Dates: start: 20120718
  2. STELARA [Suspect]
     Indication: PSORIASIS
     Route: 058
     Dates: start: 20120424
  3. STELARA [Suspect]
     Indication: PSORIASIS
     Route: 058
     Dates: start: 20121010
  4. STELARA [Suspect]
     Indication: PSORIASIS
     Route: 058
     Dates: start: 20120201
  5. STELARA [Suspect]
     Indication: PSORIASIS
     Route: 058
     Dates: start: 20111109
  6. STELARA [Suspect]
     Indication: PSORIASIS
     Route: 058
     Dates: start: 20110816
  7. STELARA [Suspect]
     Indication: PSORIASIS
     Route: 058
     Dates: start: 20110719
  8. STELARA [Suspect]
     Indication: PSORIASIS
     Route: 058
     Dates: start: 20130104
  9. METHOTREXATE [Concomitant]
  10. PREDNISOLONE [Concomitant]

REACTIONS (1)
  - Hot flush [Unknown]
